FAERS Safety Report 5700750-0 (Version None)
Quarter: 2008Q2

REPORT INFORMATION
  Report Type: 
  Country: None (occurrence: None)
  Receive Date: 20080410
  Receipt Date: 20080229
  Transmission Date: 20081010
  Serious: No
  Sender: FDA-Public Use
  Company Number: A0712743A

PATIENT
  Sex: Female

DRUGS (6)
  1. TYKERB [Suspect]
     Indication: BREAST CANCER
     Dosage: 5TAB PER DAY
     Route: 048
     Dates: start: 20080223
  2. RADIATION TREATMENT [Concomitant]
  3. STEROID [Concomitant]
  4. DIOVAN [Concomitant]
  5. AMARYL [Concomitant]
  6. ACTOS [Concomitant]

REACTIONS (1)
  - DIARRHOEA [None]
